FAERS Safety Report 5357406-6 (Version None)
Quarter: 2007Q2

REPORT INFORMATION
  Report Type: 
  Country: None (occurrence: None)
  Receive Date: 20070612
  Receipt Date: 20070612
  Transmission Date: 20071010
  Serious: Yes (Other)
  Sender: FDA-Public Use
  Company Number: None

PATIENT
  Sex: Male
  Weight: 149 kg

DRUGS (12)
  1. PFIZERPEN 20 MILLION UNITS PFIZER [Suspect]
     Indication: ABSCESS LIMB
     Dosage: 3 MILLION UNITS EVERY FOUR HOURS IV BOLUS
     Route: 040
     Dates: start: 20070517, end: 20070607
  2. PFIZERPEN 20 MILLION UNITS PFIZER [Suspect]
     Indication: CELLULITIS
     Dosage: 3 MILLION UNITS EVERY FOUR HOURS IV BOLUS
     Route: 040
     Dates: start: 20070517, end: 20070607
  3. PFIZERPEN 20 MILLIONS UNITS PFIZER [Suspect]
  4. COUMADIN [Concomitant]
  5. RELAFEN [Concomitant]
  6. HYDROCHLOROTHIAZIDE [Concomitant]
  7. LISINOPRIL [Concomitant]
  8. METOPROLOL SUCCINATE [Concomitant]
  9. ASPIRIN [Concomitant]
  10. PLAVIX [Concomitant]
  11. VICODIN [Concomitant]
  12. TYLENOL [Concomitant]

REACTIONS (1)
  - SWOLLEN TONGUE [None]
